FAERS Safety Report 12277607 (Version 7)
Quarter: 2016Q2

REPORT INFORMATION
  Report Type: Spontaneous
  Country: US (occurrence: US)
  Receive Date: 20160418
  Receipt Date: 20160605
  Transmission Date: 20160815
  Serious: Yes (Hospitalization)
  Sender: FDA-Public Use
  Company Number: US-JNJFOC-20160410349

PATIENT
  Age: 91 Year
  Sex: Male
  Weight: 73.48 kg

DRUGS (13)
  1. SERTRALINE [Concomitant]
     Active Substance: SERTRALINE HYDROCHLORIDE
     Indication: DEPRESSION
     Route: 065
  2. WELLBUTRIN [Concomitant]
     Active Substance: BUPROPION HYDROCHLORIDE
     Indication: PERSONALITY CHANGE
     Route: 065
  3. FUROSEMIDE. [Concomitant]
     Active Substance: FUROSEMIDE
     Indication: WHEEZING
     Route: 065
  4. SERTRALINE [Concomitant]
     Active Substance: SERTRALINE HYDROCHLORIDE
     Indication: ANXIETY
     Route: 065
  5. TYLENOL [Concomitant]
     Active Substance: ACETAMINOPHEN
     Route: 065
  6. XARELTO [Suspect]
     Active Substance: RIVAROXABAN
     Indication: CEREBROVASCULAR ACCIDENT PROPHYLAXIS
     Route: 048
     Dates: start: 201508, end: 20160324
  7. CARVEDILOL. [Concomitant]
     Active Substance: CARVEDILOL
     Dosage: 1/2 TABLET MORNING, ONE TABLET EVENING
     Route: 065
  8. VITAMIN D3 [Concomitant]
     Active Substance: CHOLECALCIFEROL
     Route: 065
  9. MOXIFLOXACIN. [Concomitant]
     Active Substance: MOXIFLOXACIN
     Indication: INFECTION
     Route: 065
  10. XARELTO [Suspect]
     Active Substance: RIVAROXABAN
     Indication: ATRIAL FIBRILLATION
     Route: 048
     Dates: start: 201508, end: 20160324
  11. FLORAJEN [Concomitant]
     Indication: PROBIOTIC THERAPY
     Route: 065
  12. FUROSEMIDE. [Concomitant]
     Active Substance: FUROSEMIDE
     Indication: JOINT SWELLING
     Route: 065
  13. HYDROCODONE [Concomitant]
     Active Substance: HYDROCODONE
     Indication: PAIN
     Dosage: 7.5 MG/325 MG 4 TO 6 HOURS AS NEEDED
     Route: 065

REACTIONS (5)
  - Bladder spasm [Recovered/Resolved]
  - Hypotension [Recovered/Resolved]
  - Walking aid user [Unknown]
  - Urethral haemorrhage [Recovered/Resolved]
  - Catheter site pain [Recovered/Resolved]

NARRATIVE: CASE EVENT DATE: 201603
